FAERS Safety Report 4468164-1 (Version None)
Quarter: 2004Q4

REPORT INFORMATION
  Report Type: 
  Country: None (occurrence: None)
  Receive Date: 20041007
  Receipt Date: 20040927
  Transmission Date: 20050328
  Serious: Yes (Other)
  Sender: FDA-Public Use
  Company Number: GB-BRISTOL-MYERS SQUIBB COMPANY-12713053

PATIENT
  Age: 37 Year
  Sex: Female

DRUGS (5)
  1. KENALOG [Suspect]
     Route: 051
     Dates: start: 20040907
  2. TEGRETOL [Concomitant]
     Indication: EPILEPSY
  3. LAMOTRIGINE [Concomitant]
     Indication: EPILEPSY
  4. KEPPRA [Concomitant]
     Indication: EPILEPSY
  5. TOPIRMATE [Concomitant]
     Indication: EPILEPSY

REACTIONS (1)
  - EPILEPSY [None]
